FAERS Safety Report 8208812 (Version 3)
Quarter: 2012Q4

REPORT INFORMATION
  Report Type: Report from Study
  Country: DE (occurrence: DE)
  Receive Date: 20111028
  Receipt Date: 20120921
  Transmission Date: 20130627
  Serious: Yes (Death, Hospitalization)
  Sender: FDA-Public Use
  Company Number: PHHY2011DE88014

PATIENT
  Age: 70 Year
  Sex: Male

DRUGS (8)
  1. ZOLEDRONATE [Suspect]
     Indication: BONE DISORDER
     Dosage: 4 mg/5ml
     Route: 042
     Dates: start: 20101122
  2. AFINITOR [Suspect]
     Indication: RENAL CELL CARCINOMA
     Dosage: 10 mg, UNK
     Route: 048
     Dates: start: 20110502, end: 20111024
  3. VOTRIENT [Concomitant]
  4. CALCIUM [Concomitant]
     Dosage: 600 mg, per day
     Route: 048
  5. VITAMIN D [Concomitant]
     Dosage: 400 I.E./day
     Route: 048
  6. SUNITINIB MALATE [Concomitant]
     Dosage: 50 mg/4 weeks/2 weeks pause
     Dates: start: 20110207
  7. AMLODIPINE [Concomitant]
     Dosage: 5 mg, UNK
     Dates: start: 201009
  8. METOPROLOL [Concomitant]
     Dosage: 95 mg, UNK
     Dates: start: 201009

REACTIONS (5)
  - Neoplasm progression [Fatal]
  - Malignant neoplasm progression [Fatal]
  - General physical health deterioration [Unknown]
  - Weight decreased [Not Recovered/Not Resolved]
  - Asthenia [Not Recovered/Not Resolved]
